FAERS Safety Report 8361665-5 (Version None)
Quarter: 2012Q2

REPORT INFORMATION
  Report Type: 
  Country: None (occurrence: None)
  Receive Date: 20120515
  Receipt Date: 20110817
  Transmission Date: 20120825
  Serious: No
  Sender: FDA-Public Use
  Company Number: US-ABBOTT-11P-163-0847190-00

PATIENT
  Sex: Female

DRUGS (2)
  1. VIVELLE-DOT [Suspect]
     Indication: OESTROGEN THERAPY
  2. PROMETRIUM [Suspect]
     Indication: PRODUCT USED FOR UNKNOWN INDICATION

REACTIONS (4)
  - VAGINAL HAEMORRHAGE [None]
  - DEPRESSED MOOD [None]
  - CAPSULE PHYSICAL ISSUE [None]
  - INCORRECT STORAGE OF DRUG [None]
